FAERS Safety Report 5013495-X (Version None)
Quarter: 2006Q2

REPORT INFORMATION
  Report Type: 
  Country: None (occurrence: None)
  Receive Date: 20060530
  Receipt Date: 20060323
  Transmission Date: 20061013
  Serious: Yes (Life-Threatening, Hospitalization)
  Sender: FDA-Public Use
  Company Number: JP-MERCK-0603USA04228

PATIENT
  Age: 70 Year
  Sex: Female
  Weight: 49 kg

DRUGS (9)
  1. DECADRON PHOSPHATE [Suspect]
     Indication: MULTIPLE MYELOMA
     Route: 041
     Dates: start: 20051226, end: 20051229
  2. ONCOVIN [Suspect]
     Indication: MULTIPLE MYELOMA
     Route: 041
     Dates: start: 20051226, end: 20051230
  3. ADRIACIN [Suspect]
     Indication: MULTIPLE MYELOMA
     Route: 041
     Dates: start: 20051226, end: 20051230
  4. DECADRON [Suspect]
     Indication: MULTIPLE MYELOMA
     Route: 048
     Dates: start: 20060103, end: 20060106
  5. SELBEX [Concomitant]
     Indication: GASTRITIS
     Route: 048
     Dates: start: 20051226
  6. BAKTAR [Concomitant]
     Indication: ANTIBIOTIC PROPHYLAXIS
     Route: 048
     Dates: start: 20051226
  7. PANTOSIN [Concomitant]
     Indication: CONSTIPATION
     Route: 048
     Dates: start: 20051226
  8. MAGNESIUM OXIDE [Concomitant]
     Indication: CONSTIPATION
     Route: 048
  9. LIPIDIL [Concomitant]
     Indication: HYPERTRIGLYCERIDAEMIA
     Route: 048
     Dates: start: 20051226

REACTIONS (2)
  - GASTRIC ULCER [None]
  - GASTROINTESTINAL HAEMORRHAGE [None]
